FAERS Safety Report 22163697 (Version 1)
Quarter: 2023Q2

REPORT INFORMATION
  Report Type: Spontaneous
  Country: US (occurrence: US)
  Receive Date: 20230401
  Receipt Date: 20230401
  Transmission Date: 20230722
  Serious: No
  Sender: FDA-Public Use
  Company Number: US-THEA-2022001328

PATIENT
  Sex: Female

DRUGS (2)
  1. COSOPT PF [Suspect]
     Active Substance: DORZOLAMIDE HYDROCHLORIDE\TIMOLOL MALEATE
     Indication: Uveitis
     Dosage: RIGHT EYE
     Route: 047
  2. Clarex [Concomitant]
     Route: 047

REACTIONS (6)
  - Product packaging difficult to open [Unknown]
  - Product delivery mechanism issue [Unknown]
  - Product quality issue [Unknown]
  - Accidental exposure to product [Unknown]
  - Product dose omission issue [Unknown]
  - Product packaging quantity issue [Unknown]
